FAERS Safety Report 9748714 (Version 6)
Quarter: 2014Q3

REPORT INFORMATION
  Report Type: Spontaneous
  Country: US (occurrence: None)
  Receive Date: 20131209
  Receipt Date: 20140725
  Transmission Date: 20150326
  Serious: Yes (Other)
  Sender: FDA-Public Use
  Company Number: ADR-2013-02238

PATIENT
  Sex: Male

DRUGS (1)
  1. LIORESAL [Suspect]
     Active Substance: BACLOFEN
     Indication: MUSCLE SPASTICITY
     Dosage: 46.05MCG/DAY

REACTIONS (5)
  - Muscle spasms [None]
  - Pulmonary embolism [None]
  - Performance status decreased [None]
  - Wheelchair user [None]
  - Oedema peripheral [None]
